FAERS Safety Report 5955293-6 (Version None)
Quarter: 2008Q4

REPORT INFORMATION
  Report Type: 
  Country: None (occurrence: None)
  Receive Date: 20081112
  Receipt Date: 20081031
  Transmission Date: 20090506
  Serious: Yes (Hospitalization)
  Sender: FDA-Public Use
  Company Number: 2008-185380-NL

PATIENT
  Age: 33 Year
  Sex: Female

DRUGS (2)
  1. CHORIONIC GONADOTROPIN [Suspect]
     Dosage: DF
  2. FOLLICLE-STIMULATING HORMONE, HUMAN [Suspect]
     Indication: ASSISTED FERTILISATION

REACTIONS (2)
  - DRUG EXPOSURE DURING PREGNANCY [None]
  - RUPTURED ECTOPIC PREGNANCY [None]
